FAERS Safety Report 11923007 (Version 1)
Quarter: 2016Q1

REPORT INFORMATION
  Report Type: Spontaneous
  Country: US (occurrence: US)
  Receive Date: 20160117
  Receipt Date: 20160117
  Transmission Date: 20160526
  Serious: Yes (Hospitalization)
  Sender: FDA-Public Use
  Company Number: US-INCYTE CORPORATION-2016IN000179

PATIENT
  Age: 55 Year
  Sex: Female

DRUGS (1)
  1. JAKAFI [Suspect]
     Active Substance: RUXOLITINIB
     Indication: MYELOFIBROSIS
     Dosage: 10 MG, BID
     Route: 048
     Dates: start: 20151013

REACTIONS (4)
  - Insomnia [Unknown]
  - Infection [Unknown]
  - Headache [Unknown]
  - Skin discolouration [Unknown]

NARRATIVE: CASE EVENT DATE: 20151231
